FAERS Safety Report 4620183-8 (Version None)
Quarter: 2005Q1

REPORT INFORMATION
  Report Type: 
  Country: None (occurrence: None)
  Receive Date: 20050321
  Receipt Date: 20050321
  Transmission Date: 20050727
  Serious: Yes (Other)
  Sender: FDA-Public Use
  Company Number: None

PATIENT
  Weight: 83.9154 kg

DRUGS (1)
  1. LIPITOR [Suspect]
     Indication: BLOOD CHOLESTEROL INCREASED
     Dosage: 1 TABLET   DAILY   ORAL
     Route: 048
     Dates: start: 19990201, end: 20040531

REACTIONS (5)
  - AMNESIA [None]
  - BENIGN PROSTATIC HYPERPLASIA [None]
  - BLOOD TRIGLYCERIDES INCREASED [None]
  - MUSCLE ATROPHY [None]
  - MUSCULAR WEAKNESS [None]
